FAERS Safety Report 6144650-3 (Version None)
Quarter: 2009Q2

REPORT INFORMATION
  Report Type: 
  Country: None (occurrence: None)
  Receive Date: 20090406
  Receipt Date: 20090330
  Transmission Date: 20091009
  Serious: Yes (Hospitalization, Other)
  Sender: FDA-Public Use
  Company Number: A0772814A

PATIENT
  Age: 50 Year
  Sex: Female

DRUGS (2)
  1. LAMICTAL [Suspect]
     Indication: BIPOLAR DISORDER
     Dosage: 200MG PER DAY
     Route: 048
     Dates: start: 20081201, end: 20090123
  2. XANAX [Concomitant]

REACTIONS (7)
  - BLISTER [None]
  - ERYTHEMA [None]
  - OROPHARYNGEAL BLISTERING [None]
  - PAIN [None]
  - STEVENS-JOHNSON SYNDROME [None]
  - UPPER RESPIRATORY TRACT INFECTION [None]
  - VAGINAL MUCOSAL BLISTERING [None]
